FAERS Safety Report 4349293-X (Version None)
Quarter: 2004Q2

REPORT INFORMATION
  Report Type: 
  Country: None (occurrence: None)
  Receive Date: 20040428
  Receipt Date: 20020522
  Transmission Date: 20050107
  Serious: Yes (Hospitalization)
  Sender: FDA-Public Use
  Company Number: US-BRISTOL-MYERS SQUIBB COMPANY-11871449

PATIENT
  Age: 36 Year
  Sex: Male

DRUGS (19)
  1. BMS224818 [Concomitant]
     Route: 042
     Dates: start: 20020518, end: 20020522
  2. MYCOPHENOLATE MOFETIL [Suspect]
     Route: 048
     Dates: start: 20020518
  3. METHYLPREDNISOLONE [Suspect]
     Route: 042
     Dates: start: 20020518, end: 20020519
  4. PREDNISONE [Suspect]
     Route: 048
     Dates: start: 20020520
  5. BASILIXIMAB [Suspect]
     Route: 042
     Dates: start: 20020518, end: 20020518
  6. ALBUTEROL SULFATE [Concomitant]
     Dates: start: 20020518
  7. FUROSEMIDE [Concomitant]
     Dates: start: 20020518
  8. AMPHOTERICIN B [Concomitant]
     Dates: start: 20020519
  9. PANTOPRAZOLE [Concomitant]
     Dates: start: 20020519
  10. AMPICILLIN [Concomitant]
     Dates: start: 20020518
  11. METOPROLOL [Concomitant]
     Dates: start: 20020518
  12. CEFTRIAXONE [Concomitant]
     Dates: start: 20020519
  13. CLINDAMYCIN HCL [Concomitant]
     Dates: start: 20020519
  14. PROPOFOL [Concomitant]
     Dates: start: 20020521
  15. INSULIN HUMAN [Concomitant]
     Dates: start: 20020521
  16. DOPAMINE HCL [Concomitant]
     Dates: start: 20020518
  17. PIRINITRAMIDE [Concomitant]
     Dates: start: 20020519, end: 20020519
  18. AMLODIPINE [Concomitant]
     Dates: start: 20020519
  19. METOPROLOL SUCCINATE [Concomitant]
     Dates: start: 20020519

REACTIONS (5)
  - CARDIAC FAILURE [None]
  - KIDNEY TRANSPLANT REJECTION [None]
  - PNEUMONIA [None]
  - PULMONARY OEDEMA [None]
  - RESPIRATORY FAILURE [None]
